FAERS Safety Report 5774471-2 (Version None)
Quarter: 2008Q2

REPORT INFORMATION
  Report Type: 
  Country: None (occurrence: None)
  Receive Date: 20080616
  Receipt Date: 20080610
  Transmission Date: 20081010
  Serious: Yes (Other)
  Sender: FDA-Public Use
  Company Number: HU-BOEHRINGER INGELHEIM GMBH, GERMANY-2008-BP-09060RO

PATIENT
  Age: 71 Year
  Sex: Male

DRUGS (1)
  1. OXCARBAZEPINE [Suspect]
     Indication: EPILEPSY

REACTIONS (3)
  - AGITATION [None]
  - FEAR [None]
  - HALLUCINATION, VISUAL [None]
